FAERS Safety Report 5089545-1 (Version None)
Quarter: 2006Q3

REPORT INFORMATION
  Report Type: 
  Country: None (occurrence: None)
  Receive Date: 20060727
  Receipt Date: 20060605
  Transmission Date: 20061208
  Serious: Yes (Other)
  Sender: FDA-Public Use
  Company Number: 2006073081

PATIENT
  Sex: Male

DRUGS (3)
  1. LYRICA [Suspect]
     Indication: ILL-DEFINED DISORDER
     Dosage: 600 MG (200 MG, 3 IN 1 D), UNKNOWN
  2. CYMBALTA [Suspect]
     Indication: DEPRESSION
     Dates: start: 20060101, end: 20060605
  3. MEPERIDINE HCL [Concomitant]

REACTIONS (4)
  - CONFUSIONAL STATE [None]
  - DEPRESSION [None]
  - NASOPHARYNGITIS [None]
  - RASH [None]
